FAERS Safety Report 19779404 (Version 3)
Quarter: 2022Q2

REPORT INFORMATION
  Report Type: Spontaneous
  Country: US (occurrence: US)
  Receive Date: 20210902
  Receipt Date: 20220613
  Transmission Date: 20220721
  Serious: No
  Sender: FDA-Public Use
  Company Number: US-PFIZER INC-2021702510

PATIENT
  Age: 74 Year
  Sex: Female

DRUGS (3)
  1. XELJANZ XR [Suspect]
     Active Substance: TOFACITINIB CITRATE
     Dosage: 11 MG
     Dates: start: 20210401
  2. XELJANZ XR [Suspect]
     Active Substance: TOFACITINIB CITRATE
     Dosage: 11 MG
     Dates: start: 20210419
  3. XELJANZ XR [Suspect]
     Active Substance: TOFACITINIB CITRATE
     Dosage: 11 MG
     Dates: start: 20210812

REACTIONS (15)
  - Product dose omission in error [Unknown]
  - Arthralgia [Unknown]
  - Nasopharyngitis [Unknown]
  - Chills [Unknown]
  - Fatigue [Unknown]
  - Blood pressure increased [Unknown]
  - COVID-19 [Unknown]
  - Feeling abnormal [Unknown]
  - Illness [Unknown]
  - Somnolence [Unknown]
  - Abdominal pain upper [Unknown]
  - Ligament sprain [Unknown]
  - Malaise [Unknown]
  - Infection [Unknown]
  - Memory impairment [Unknown]

NARRATIVE: CASE EVENT DATE: 20210611
